FAERS Safety Report 9423170 (Version 1)
Quarter: 2013Q3

REPORT INFORMATION
  Report Type: Spontaneous
  Country: GB (occurrence: None)
  Receive Date: 20130724
  Receipt Date: 20130724
  Transmission Date: 20140515
  Serious: Yes (Life-Threatening, Hospitalization, Other)
  Sender: FDA-Public Use
  Company Number: AUR-APL-2013-06083

PATIENT
  Age: 95 Year
  Sex: Male
  Weight: 55.65 kg

DRUGS (10)
  1. CIPROFLOXACIN [Suspect]
     Indication: LOWER RESPIRATORY TRACT INFECTION
     Route: 048
     Dates: start: 20121217
  2. WARFARIN [Suspect]
     Indication: ATRIAL FIBRILLATION
     Route: 048
  3. CARBOCISTEINE (CARBOCISTEINE [Concomitant]
  4. DIGOXIN (DIGOXIN) [Concomitant]
  5. FERROUS FUMARATE (FERROUS FUMARATE) [Concomitant]
  6. FLUTICASONE (FLUTICASONE) [Concomitant]
  7. IPRATROPIUM (IPRATROPIUM) [Concomitant]
  8. LANSOPRAZOLE (LANSOPRAZOLE) [Concomitant]
  9. SALBUTAMOL (SALBUTAMOL) [Concomitant]
  10. FUROSEMIDE [Concomitant]

REACTIONS (5)
  - International normalised ratio increased [None]
  - Pneumonia [None]
  - Platelet count decreased [None]
  - Drug interaction [None]
  - Contraindication to medical treatment [None]
